FAERS Safety Report 18542996 (Version 2)
Quarter: 2020Q4

REPORT INFORMATION
  Report Type: Spontaneous
  Country: US (occurrence: US)
  Receive Date: 20201124
  Receipt Date: 20201205
  Transmission Date: 20210114
  Serious: No
  Sender: FDA-Public Use
  Company Number: US-TAKEDA-2020TUS049533

PATIENT
  Sex: Male
  Weight: 92.97 kg

DRUGS (19)
  1. BREO ELLIPTA [Concomitant]
     Active Substance: FLUTICASONE FUROATE\VILANTEROL TRIFENATATE
     Route: 065
  2. MAGNESIUM [Concomitant]
     Active Substance: MAGNESIUM
     Route: 065
  3. XTAMPZA ER [Concomitant]
     Active Substance: OXYCODONE
     Route: 065
  4. ESZOPICLONE. [Concomitant]
     Active Substance: ESZOPICLONE
     Route: 065
  5. ALEVE [Concomitant]
     Active Substance: NAPROXEN SODIUM
     Route: 065
  6. GAMMAGARD LIQUID [Suspect]
     Active Substance: HUMAN IMMUNOGLOBULIN G
     Indication: IMMUNODEFICIENCY COMMON VARIABLE
     Dosage: 11 GRAM, 1/WEEK
     Route: 058
     Dates: start: 20201029
  7. HYDROCODONE BITARTRATE. [Concomitant]
     Active Substance: HYDROCODONE BITARTRATE
     Route: 065
  8. ACETAMINOPHEN. [Concomitant]
     Active Substance: ACETAMINOPHEN
     Route: 065
  9. SINGULAIR [Concomitant]
     Active Substance: MONTELUKAST SODIUM
     Route: 065
  10. TESTOSTERONE. [Concomitant]
     Active Substance: TESTOSTERONE
     Route: 065
  11. ATROVENT [Concomitant]
     Active Substance: IPRATROPIUM BROMIDE
     Route: 065
  12. EPINEPHRINE. [Concomitant]
     Active Substance: EPINEPHRINE
     Route: 065
  13. NASONEX [Concomitant]
     Active Substance: MOMETASONE FUROATE
     Route: 065
  14. TOLTERODINE TARTRATE. [Concomitant]
     Active Substance: TOLTERODINE TARTRATE
     Route: 065
  15. SUDAFED [Concomitant]
     Active Substance: PSEUDOEPHEDRINE HYDROCHLORIDE
     Route: 065
  16. MUCINEX [Concomitant]
     Active Substance: GUAIFENESIN
     Route: 065
  17. LIDOCAINE. [Concomitant]
     Active Substance: LIDOCAINE
     Route: 065
  18. DIPHENHYDRAMINE. [Concomitant]
     Active Substance: DIPHENHYDRAMINE
     Route: 065
  19. VITAMINS NOS [Concomitant]
     Active Substance: VITAMINS
     Route: 065

REACTIONS (5)
  - Infusion site erythema [Unknown]
  - Infusion site oedema [Unknown]
  - Infusion site pruritus [Unknown]
  - Lipohypertrophy [Recovering/Resolving]
  - Abdominal discomfort [Unknown]
